FAERS Safety Report 5254780-6 (Version None)
Quarter: 2007Q1

REPORT INFORMATION
  Report Type: 
  Country: None (occurrence: None)
  Receive Date: 20070228
  Receipt Date: 20070228
  Transmission Date: 20070707
  Serious: Yes (Hospitalization)
  Sender: FDA-Public Use
  Company Number: None

PATIENT
  Sex: Female

DRUGS (8)
  1. BETASERON [Suspect]
     Indication: MULTIPLE SCLEROSIS
     Dosage: 250 MCG  ALTERNATE DAYS  SQ
     Dates: start: 20050919
  2. PROZAC [Concomitant]
  3. XANAX [Concomitant]
  4. ARICEPT [Concomitant]
  5. DETROL LA [Concomitant]
  6. DISTROPAN [Concomitant]
  7. CELEBREX [Concomitant]
  8. BETASERON [Concomitant]

REACTIONS (4)
  - ASTHMA [None]
  - BRONCHITIS [None]
  - MALAISE [None]
  - VIRAL INFECTION [None]
